FAERS Safety Report 11251015 (Version 1)
Quarter: 2015Q3

REPORT INFORMATION
  Report Type: Spontaneous
  Country: US (occurrence: US)
  Receive Date: 20150708
  Receipt Date: 20150708
  Transmission Date: 20151125
  Serious: Yes (Hospitalization, Other)
  Sender: FDA-Public Use
  Company Number: US-ELI_LILLY_AND_COMPANY-US201106003524

PATIENT
  Sex: Female

DRUGS (2)
  1. FOLIC ACID. [Concomitant]
     Active Substance: FOLIC ACID
     Dosage: UNK, UNKNOWN
  2. ALIMTA [Suspect]
     Active Substance: PEMETREXED DISODIUM
     Indication: OVARIAN CANCER
     Dosage: UNK UNK, UNKNOWN
     Route: 042

REACTIONS (3)
  - Off label use [Unknown]
  - Renal impairment [Unknown]
  - Bone marrow failure [Unknown]
